FAERS Safety Report 4285595-3 (Version None)
Quarter: 2004Q1

REPORT INFORMATION
  Report Type: 
  Country: None (occurrence: None)
  Receive Date: 20040202
  Receipt Date: 20040128
  Transmission Date: 20041129
  Serious: Yes (Death)
  Sender: FDA-Public Use
  Company Number: US-JNJFOC-20031005043

PATIENT
  Age: 64 Year
  Sex: Male

DRUGS (3)
  1. RISPERDAL [Suspect]
     Indication: DRUG USE FOR UNKNOWN INDICATION
     Dosage: 2 MG, 3 IN 1 DAY, ORAL
     Route: 048
     Dates: start: 20010101
  2. ATIVAN [Concomitant]
  3. COGENTIN [Concomitant]

REACTIONS (1)
  - CARCINOMA [None]
